FAERS Safety Report 19244701 (Version 2)
Quarter: 2024Q2

REPORT INFORMATION
  Report Type: Spontaneous
  Country: US (occurrence: US)
  Receive Date: 20210512
  Receipt Date: 20240624
  Transmission Date: 20240716
  Serious: No
  Sender: FDA-Public Use
  Company Number: US-GSKCCFUS-CASE-01051147_AE-62314

PATIENT
  Age: 88 Year
  Sex: Female

DRUGS (1)
  1. TRELEGY ELLIPTA [Suspect]
     Active Substance: FLUTICASONE FUROATE\UMECLIDINIUM BROMIDE\VILANTEROL TRIFENATATE
     Indication: Chronic obstructive pulmonary disease
     Dosage: 1 PUFF(S), QD, 100/62.5/25MCG
     Route: 055
     Dates: start: 202209

REACTIONS (2)
  - COVID-19 [Recovering/Resolving]
  - Product confusion [Unknown]

NARRATIVE: CASE EVENT DATE: 20240611
